FAERS Safety Report 18813412 (Version 1)
Quarter: 2021Q1

REPORT INFORMATION
  Report Type: Spontaneous
  Country: US (occurrence: US)
  Receive Date: 20210201
  Receipt Date: 20210201
  Transmission Date: 20210419
  Serious: No
  Sender: FDA-Public Use
  Company Number: NVSC2021US016936

PATIENT
  Sex: Female

DRUGS (1)
  1. TRILEPTAL [Suspect]
     Active Substance: OXCARBAZEPINE
     Indication: PRODUCT USED FOR UNKNOWN INDICATION
     Dosage: 300 MG, BID
     Route: 065
     Dates: start: 202005

REACTIONS (10)
  - Insomnia [Unknown]
  - Diarrhoea [Unknown]
  - Dyspepsia [Unknown]
  - Burning sensation [Unknown]
  - Spinal pain [Unknown]
  - Weight increased [Unknown]
  - Abdominal pain upper [Unknown]
  - Discomfort [Unknown]
  - Migraine [Unknown]
  - Hypertension [Unknown]
